APPROVED DRUG PRODUCT: TREPROSTINIL
Active Ingredient: TREPROSTINIL
Strength: 5MG/ML
Dosage Form/Route: INJECTABLE;INTRAVENOUS, SUBCUTANEOUS
Application: A209382 | Product #003
Applicant: PH HEALTH LTD
Approved: Sep 24, 2019 | RLD: No | RS: No | Type: DISCN